FAERS Safety Report 6978590-4 (Version None)
Quarter: 2010Q3

REPORT INFORMATION
  Report Type: 
  Country: None (occurrence: None)
  Receive Date: 20100913
  Receipt Date: 20100908
  Transmission Date: 20110219
  Serious: Yes (Death, Other)
  Sender: FDA-Public Use
  Company Number: US-SANOFI-AVENTIS-2010SA054244

PATIENT
  Sex: Male

DRUGS (3)
  1. MULTAQ [Suspect]
     Route: 048
  2. AMIODARONE HCL [Concomitant]
     Indication: VENTRICULAR TACHYCARDIA
  3. AMIODARONE HCL [Concomitant]
     Indication: VENTRICULAR FIBRILLATION

REACTIONS (2)
  - CARDIAC OUTPUT DECREASED [None]
  - DEATH [None]
